FAERS Safety Report 6770023-6 (Version None)
Quarter: 2010Q2

REPORT INFORMATION
  Report Type: 
  Country: None (occurrence: None)
  Receive Date: 20100615
  Receipt Date: 20100607
  Transmission Date: 20101027
  Serious: Yes (Other)
  Sender: FDA-Public Use
  Company Number: US-JNJFOC-20100604231

PATIENT
  Sex: Female
  Weight: 79.38 kg

DRUGS (11)
  1. IMODIUM [Suspect]
     Route: 048
  2. IMODIUM [Suspect]
     Indication: DIARRHOEA
     Route: 048
  3. ZOLOFT [Suspect]
     Indication: ANXIETY
     Route: 048
  4. ZOLOFT [Suspect]
     Route: 048
  5. ZOLOFT [Suspect]
     Route: 048
  6. ZOLOFT [Suspect]
     Indication: DEPRESSION
     Route: 048
  7. ZOLOFT [Suspect]
     Route: 048
  8. ZOLOFT [Suspect]
     Route: 048
  9. ESTRADIOL [Concomitant]
     Route: 065
  10. PEPTO BISMOL [Concomitant]
     Indication: DIARRHOEA
     Route: 065
  11. CITRUCEL [Concomitant]
     Indication: DIARRHOEA
     Route: 065

REACTIONS (6)
  - ASTHENIA [None]
  - BURNING SENSATION [None]
  - DRUG INEFFECTIVE [None]
  - PRODUCT TASTE ABNORMAL [None]
  - SKIN REACTION [None]
  - WEIGHT DECREASED [None]
